FAERS Safety Report 12924262 (Version 2)
Quarter: 2017Q1

REPORT INFORMATION
  Report Type: Report from Study
  Country: None (occurrence: BR)
  Receive Date: 20161108
  Receipt Date: 20170206
  Transmission Date: 20170428
  Serious: Yes (Hospitalization, Other)
  Sender: FDA-Public Use
  Company Number: BR-ABBVIE-15K-020-1530552-00

PATIENT
  Age: 66 Year
  Sex: Female
  Weight: 49 kg

DRUGS (13)
  1. HUMIRA [Suspect]
     Active Substance: ADALIMUMAB
     Route: 058
     Dates: end: 20170108
  2. VITAMIN E [Concomitant]
     Active Substance: .ALPHA.-TOCOPHEROL
     Indication: NUTRITIONAL SUPPLEMENTATION
     Route: 048
  3. PREDNISONE. [Concomitant]
     Active Substance: PREDNISONE
     Indication: RHEUMATOID ARTHRITIS
     Route: 048
     Dates: start: 1993
  4. METHOTREXATE. [Concomitant]
     Active Substance: METHOTREXATE
     Indication: RHEUMATOID ARTHRITIS
     Route: 048
     Dates: start: 2012
  5. BIOTIN [Concomitant]
     Active Substance: BIOTIN
     Indication: NUTRITIONAL SUPPLEMENTATION
     Route: 048
  6. SELENIUM [Concomitant]
     Active Substance: SELENIUM
     Indication: NUTRITIONAL SUPPLEMENTATION
     Route: 048
  7. COLLAGEN [Concomitant]
     Active Substance: COLLAGEN
     Indication: NUTRITIONAL SUPPLEMENTATION
     Route: 048
  8. HUMIRA [Suspect]
     Active Substance: ADALIMUMAB
     Indication: RHEUMATOID ARTHRITIS
     Route: 058
     Dates: start: 20120119
  9. ALGINAC [Concomitant]
     Active Substance: CYANOCOBALAMIN\DICLOFENAC SODIUM\PYRIDOXINE HYDROCHLORIDE\THIAMINE MONONITRATE
     Indication: RHEUMATOID ARTHRITIS
     Route: 048
     Dates: start: 2007
  10. ALGINAC [Concomitant]
     Active Substance: CYANOCOBALAMIN\DICLOFENAC SODIUM\PYRIDOXINE HYDROCHLORIDE\THIAMINE MONONITRATE
     Indication: PAIN
  11. VITAMIN A [Concomitant]
     Active Substance: VITAMIN A
     Indication: NUTRITIONAL SUPPLEMENTATION
     Route: 048
  12. ZINC. [Concomitant]
     Active Substance: ZINC
     Indication: NUTRITIONAL SUPPLEMENTATION
     Route: 048
  13. FOLIC ACID. [Concomitant]
     Active Substance: FOLIC ACID
     Indication: RHEUMATOID ARTHRITIS
     Route: 048
     Dates: start: 2012

REACTIONS (8)
  - Stress [Recovered/Resolved]
  - Nervousness [Recovered/Resolved]
  - Foot deformity [Recovered/Resolved]
  - Eating disorder [Unknown]
  - Post procedural infection [Recovered/Resolved]
  - Weight decreased [Unknown]
  - Drug ineffective [Unknown]
  - Medical device implantation [Unknown]

NARRATIVE: CASE EVENT DATE: 20150218
